FAERS Safety Report 14745138 (Version 5)
Quarter: 2022Q4

REPORT INFORMATION
  Report Type: Report from Study
  Country: US (occurrence: None)
  Receive Date: 20180411
  Receipt Date: 20221014
  Transmission Date: 20230113
  Serious: Yes (Life-Threatening, Other)
  Sender: FDA-Public Use
  Company Number: US-ROCHE-1985433

PATIENT
  Age: 72 Year
  Sex: Female
  Weight: 53.6 kg

DRUGS (2)
  1. ATEZOLIZUMAB [Suspect]
     Active Substance: ATEZOLIZUMAB
     Indication: Diffuse large B-cell lymphoma
     Dosage: CYCLE 1.?OVER 60 MINUTES ON DAY 1,
     Route: 042
     Dates: start: 20170525, end: 20170613
  2. ATEZOLIZUMAB [Suspect]
     Active Substance: ATEZOLIZUMAB
     Indication: Haematopoietic neoplasm
     Dosage: CYCLE 2.?NEXT DOSE ON 19/JUL/2017?CYCLE 3 (DELAYED). ON 09/AUG/2019, SHE RECEIVED SUBSEQUENT  DOSE O
     Route: 042
     Dates: start: 20170614, end: 20170705

REACTIONS (2)
  - White blood cell count decreased [Recovered/Resolved]
  - Neutrophil count decreased [Unknown]

NARRATIVE: CASE EVENT DATE: 20170705
